FAERS Safety Report 15677142 (Version 1)
Quarter: 2018Q4

REPORT INFORMATION
  Report Type: Spontaneous
  Country: US (occurrence: US)
  Receive Date: 20181130
  Receipt Date: 20181130
  Transmission Date: 20190205
  Serious: Yes (Other)
  Sender: FDA-Public Use
  Company Number: US-MALLINCKRODT-T201805111

PATIENT
  Age: 33 Year
  Sex: Female

DRUGS (2)
  1. MORPHINE [Suspect]
     Active Substance: MORPHINE
     Indication: ABDOMINAL PAIN
     Dosage: UNKNOWN
     Route: 065
  2. METHADONE [Suspect]
     Active Substance: METHADONE HYDROCHLORIDE
     Indication: ABDOMINAL PAIN
     Dosage: 5 MG, TWICE A DAY
     Route: 065

REACTIONS (2)
  - Hypoglycaemia [Recovered/Resolved]
  - Drug effect decreased [Unknown]
